FAERS Safety Report 8259263-7 (Version None)
Quarter: 2012Q1

REPORT INFORMATION
  Report Type: 
  Country: None (occurrence: None)
  Receive Date: 20120327
  Receipt Date: 20090120
  Transmission Date: 20120608
  Serious: Yes (Death)
  Sender: FDA-Public Use
  Company Number: PHEH2008US09294

PATIENT
  Sex: Female

DRUGS (2)
  1. GLEEVEC [Suspect]
     Dosage: 600 MG, QD, ORAL
     Route: 048
     Dates: start: 20080401, end: 20080823
  2. GLEEVEC [Suspect]

REACTIONS (1)
  - BLAST CRISIS IN MYELOGENOUS LEUKAEMIA [None]
